FAERS Safety Report 11805301 (Version 2)
Quarter: 2015Q4

REPORT INFORMATION
  Report Type: Report from Study
  Country: US (occurrence: US)
  Receive Date: 20151206
  Receipt Date: 20151223
  Transmission Date: 20160305
  Serious: Yes (Other)
  Sender: FDA-Public Use
  Company Number: US-AMGEN-USASL2015128634

PATIENT
  Age: 75 Year
  Sex: Female
  Weight: 88.89 kg

DRUGS (2)
  1. REPATHA [Suspect]
     Active Substance: EVOLOCUMAB
     Indication: CORONARY ARTERY DISEASE
  2. REPATHA [Suspect]
     Active Substance: EVOLOCUMAB
     Indication: HYPERLIPIDAEMIA
     Dosage: UNK
     Route: 065
     Dates: start: 20151105

REACTIONS (5)
  - Haemorrhage [Unknown]
  - Contusion [Unknown]
  - Injection site erythema [Recovering/Resolving]
  - Nausea [Unknown]
  - Presyncope [Recovered/Resolved]

NARRATIVE: CASE EVENT DATE: 2015
